FAERS Safety Report 7366557-6 (Version None)
Quarter: 2011Q1

REPORT INFORMATION
  Report Type: 
  Country: None (occurrence: None)
  Receive Date: 20110317
  Receipt Date: 20110317
  Transmission Date: 20110831
  Serious: Yes (Other)
  Sender: FDA-Public Use
  Company Number: None

PATIENT
  Age: 46 Year
  Sex: Male
  Weight: 149 kg

DRUGS (1)
  1. CUBICIN [Suspect]
     Indication: STAPHYLOCOCCAL INFECTION
     Dosage: 800 MG Q24H IV DRIP
     Route: 041
     Dates: start: 20110307, end: 20110308

REACTIONS (2)
  - JOINT STIFFNESS [None]
  - FEELING HOT [None]
